FAERS Safety Report 6241517-7 (Version None)
Quarter: 2009Q2

REPORT INFORMATION
  Report Type: 
  Country: None (occurrence: None)
  Receive Date: 20090623
  Receipt Date: 20040106
  Transmission Date: 20091009
  Serious: Yes (Hospitalization)
  Sender: FDA-Public Use
  Company Number: DE-ROCHE-355245

PATIENT
  Sex: Female

DRUGS (26)
  1. MYCOPHENOLATE MOFETIL [Suspect]
     Dosage: DRUG: MYCOPHENOLAT MOFETIL
     Route: 048
     Dates: start: 20031018, end: 20031019
  2. MYCOPHENOLATE MOFETIL [Suspect]
     Route: 048
     Dates: start: 20031020, end: 20031022
  3. MYCOPHENOLATE MOFETIL [Suspect]
     Route: 048
     Dates: start: 20031023, end: 20031105
  4. MYCOPHENOLATE MOFETIL [Suspect]
     Route: 048
     Dates: start: 20031106, end: 20031112
  5. MYCOPHENOLATE MOFETIL [Suspect]
     Route: 048
     Dates: start: 20031113, end: 20040102
  6. DACLIZUMAB [Suspect]
     Route: 042
     Dates: start: 20031017
  7. DACLIZUMAB [Suspect]
     Route: 042
     Dates: start: 20031030, end: 20031212
  8. CYCLOSPORINE [Suspect]
     Dosage: DRUG: CYCLOSPORINE
     Route: 048
     Dates: start: 20031017, end: 20031025
  9. CYCLOSPORINE [Suspect]
     Route: 048
     Dates: start: 20031027
  10. METHYLPREDNISOLONE [Suspect]
     Route: 048
     Dates: start: 20031020, end: 20031101
  11. METHYLPREDNISOLONE [Suspect]
     Route: 048
     Dates: start: 20031102, end: 20031109
  12. METHYLPREDNISOLONE [Suspect]
     Route: 048
     Dates: start: 20031110, end: 20040623
  13. METHYLPREDNISOLONE [Suspect]
     Route: 048
     Dates: start: 20040624, end: 20041211
  14. METHYLPREDNISOLONE [Suspect]
     Route: 048
     Dates: start: 20041212
  15. CARMEN [Concomitant]
     Dosage: 1/2 IN THE AM AND 1/2 IN THE PM.
  16. BELOC-ZOK [Concomitant]
     Route: 048
     Dates: start: 20031026
  17. VESDIL [Concomitant]
     Route: 048
     Dates: start: 20031111, end: 20040105
  18. PRAVASTATIN SODIUM [Concomitant]
     Route: 048
     Dates: start: 20031019
  19. CYMEVEN [Concomitant]
     Route: 048
     Dates: start: 20031022, end: 20031105
  20. CYMEVEN [Concomitant]
     Route: 048
     Dates: start: 20031106
  21. METHYLPREDNISOLONE [Suspect]
     Route: 042
     Dates: start: 20031018, end: 20031019
  22. CYCLOSPORINE [Suspect]
     Dosage: DRUG: CYCLOSPORINE
     Route: 048
     Dates: start: 20031026, end: 20031026
  23. AMLODIPINE [Concomitant]
     Route: 048
     Dates: start: 20031103
  24. CEFAZOLIN [Concomitant]
     Route: 042
     Dates: start: 20031018
  25. CIPROFLOXACIN [Concomitant]
     Route: 048
     Dates: start: 20031110
  26. FLUCONAZOLE [Concomitant]
     Route: 048
     Dates: end: 20031026

REACTIONS (2)
  - ACUTE PRERENAL FAILURE [None]
  - ENTERITIS INFECTIOUS [None]
